FAERS Safety Report 6674339-3 (Version None)
Quarter: 2010Q2

REPORT INFORMATION
  Report Type: 
  Country: None (occurrence: None)
  Receive Date: 20100409
  Receipt Date: 20100331
  Transmission Date: 20101027
  Serious: Yes (Other)
  Sender: FDA-Public Use
  Company Number: US-JNJFOC-20060400462

PATIENT
  Sex: Female
  Weight: 111.13 kg

DRUGS (8)
  1. RISPERDAL [Suspect]
     Indication: BIPOLAR DISORDER
  2. RISPERDAL [Suspect]
  3. RISPERDAL [Suspect]
  4. ZYPREXA [Suspect]
     Indication: BIPOLAR DISORDER
  5. ZYPREXA [Suspect]
  6. LIPITOR [Concomitant]
  7. ATENOLOL [Concomitant]
  8. PROZAC [Concomitant]

REACTIONS (3)
  - DIABETES MELLITUS [None]
  - HEPATIC STEATOSIS [None]
  - WEIGHT INCREASED [None]
